FAERS Safety Report 9880466 (Version 6)
Quarter: 2014Q2

REPORT INFORMATION
  Report Type: Report from Study
  Country: DE (occurrence: DE)
  Receive Date: 20140207
  Receipt Date: 20140422
  Transmission Date: 20141212
  Serious: Yes (Death, Hospitalization)
  Sender: FDA-Public Use
  Company Number: DE-ROCHE-1342396

PATIENT
  Age: 77 Year
  Sex: Female
  Weight: 46 kg

DRUGS (12)
  1. BENDAMUSTINE [Suspect]
     Indication: NON-HODGKIN^S LYMPHOMA UNSPECIFIED HISTOLOGY INDOLENT
     Dosage: DOSE OF LAST BENDAMUSTINE TAKEN 115MG.?DATE OF MOST RECENT DOSE OF BENDAMUSTINE PRIOR TO AE ONSET: 2
     Route: 042
     Dates: start: 20130809
  2. OBINUTUZUMAB [Suspect]
     Indication: NON-HODGKIN^S LYMPHOMA UNSPECIFIED HISTOLOGY INDOLENT
     Dosage: VOLUME OF LAST OBINUTUZUMAB (GA101) TAKEN: 500ML, DOSE CONCENTRATION OF LAST GA101 TAKEN: 2MG/ML?DAT
     Route: 042
     Dates: start: 20130808
  3. LANSOPRAZOLE [Concomitant]
     Indication: PROPHYLAXIS
     Route: 065
     Dates: start: 20130807
  4. RAMIPRIL [Concomitant]
     Indication: HYPERTENSION
     Route: 065
     Dates: start: 20130715
  5. HYDROCHLOROTHIAZIDE [Concomitant]
     Indication: HYPERTENSION
     Route: 065
     Dates: start: 20130715
  6. LEVODOPA [Concomitant]
     Indication: PARKINSON^S DISEASE
     Route: 065
     Dates: start: 2007
  7. CARBIDOPA [Concomitant]
     Indication: PARKINSON^S DISEASE
     Route: 065
     Dates: start: 2006
  8. PRAMIPEXOLE [Concomitant]
     Indication: PARKINSON^S DISEASE
     Route: 065
     Dates: start: 2006
  9. METAMIZOL [Concomitant]
     Indication: PAIN
     Route: 065
     Dates: start: 20130715
  10. ALLOPURINOL [Concomitant]
     Indication: PROPHYLACTIC CHEMOTHERAPY
     Route: 065
     Dates: start: 20130807
  11. AMPHOTERICIN [Concomitant]
     Indication: PROPHYLAXIS
     Route: 065
     Dates: start: 20130807
  12. CO-TRIMOXAZOLE [Concomitant]
     Route: 065
     Dates: start: 20130807

REACTIONS (1)
  - Dehydration [Fatal]
